FAERS Safety Report 9887218 (Version 1)
Quarter: 2014Q1

REPORT INFORMATION
  Report Type: Spontaneous
  Country: US (occurrence: US)
  Receive Date: 20140211
  Receipt Date: 20140211
  Transmission Date: 20141002
  Serious: No
  Sender: FDA-Public Use
  Company Number: US-BIOGENIDEC-2014BI010060

PATIENT
  Age: 48 Year
  Sex: Female

DRUGS (5)
  1. TECFIDERA [Suspect]
     Indication: MULTIPLE SCLEROSIS
     Route: 048
     Dates: start: 201312
  2. TYLENOL [Concomitant]
  3. CITALOPRAM [Concomitant]
  4. LEVOTHYROXIN [Concomitant]
  5. COPAXONE [Concomitant]

REACTIONS (9)
  - Gastric disorder [Not Recovered/Not Resolved]
  - Toothache [Unknown]
  - Gingival pain [Unknown]
  - Lip swelling [Unknown]
  - Swelling face [Unknown]
  - Dry mouth [Unknown]
  - Flushing [Not Recovered/Not Resolved]
  - Feeling of body temperature change [Not Recovered/Not Resolved]
  - Erythema [Not Recovered/Not Resolved]
